FAERS Safety Report 9462127 (Version 2)
Quarter: 2013Q3

REPORT INFORMATION
  Report Type: Spontaneous
  Country: US (occurrence: None)
  Receive Date: 20130813
  Receipt Date: 20130827
  Transmission Date: 20140515
  Serious: Yes (Other)
  Sender: FDA-Public Use
  Company Number: 2013P1016245

PATIENT
  Age: 23 Year
  Sex: Female

DRUGS (2)
  1. MYORISAN [Suspect]
     Dates: start: 20130412
  2. MYORISAN [Suspect]
     Dates: start: 20130521

REACTIONS (6)
  - Pregnancy test positive [None]
  - Pregnancy with contraceptive device [None]
  - Treatment noncompliance [None]
  - Pregnancy with contraceptive device [None]
  - Pregnancy with contraceptive device [None]
  - Maternal exposure during pregnancy [None]
